FAERS Safety Report 9319348 (Version 1)
Quarter: 2013Q2

REPORT INFORMATION
  Report Type: Spontaneous
  Country: US (occurrence: US)
  Receive Date: 20130530
  Receipt Date: 20130530
  Transmission Date: 20140414
  Serious: Yes (Hospitalization)
  Sender: FDA-Public Use
  Company Number: US-JNJFOC-20130513781

PATIENT
  Age: 64 Year
  Sex: Female

DRUGS (5)
  1. XARELTO [Suspect]
     Indication: KNEE ARTHROPLASTY
     Route: 048
     Dates: start: 20130513, end: 201305
  2. XARELTO [Suspect]
     Indication: DEEP VEIN THROMBOSIS
     Route: 048
     Dates: start: 20130513, end: 201305
  3. SIMVASTATIN [Concomitant]
     Route: 065
  4. HYDROCODONE [Concomitant]
     Route: 065
  5. ATENOLOL [Concomitant]
     Route: 065

REACTIONS (1)
  - Pulmonary embolism [Not Recovered/Not Resolved]
